FAERS Safety Report 4318797-8 (Version None)
Quarter: 2004Q1

REPORT INFORMATION
  Report Type: 
  Country: None (occurrence: None)
  Receive Date: 20040318
  Receipt Date: 20040304
  Transmission Date: 20041129
  Serious: Yes (Death, Other)
  Sender: FDA-Public Use
  Company Number: GB-GLAXOSMITHKLINE-B0325739A

PATIENT
  Age: 88 Year
  Sex: Female
  Weight: 56.7 kg

DRUGS (4)
  1. DIGOXIN [Suspect]
     Indication: CARDIAC FAILURE
     Dosage: 125MCG PER DAY
     Route: 048
     Dates: end: 20030327
  2. RAMIPRIL [Concomitant]
     Indication: HYPERTENSION
     Dosage: 1.25MG PER DAY
     Route: 048
     Dates: start: 20030201, end: 20030327
  3. SIMVASTATIN [Concomitant]
     Indication: HYPERCHOLESTEROLAEMIA
     Dosage: 10MG PER DAY
     Route: 048
     Dates: start: 20030324, end: 20030327
  4. ASPIRIN [Concomitant]
     Indication: HYPERCOAGULATION
     Dosage: 75MG PER DAY
     Route: 048
     Dates: end: 20030327

REACTIONS (3)
  - CONTUSION [None]
  - FALL [None]
  - HEAD INJURY [None]
